FAERS Safety Report 7811940-5 (Version None)
Quarter: 2011Q4

REPORT INFORMATION
  Report Type: 
  Country: None (occurrence: None)
  Receive Date: 20111013
  Receipt Date: 20111007
  Transmission Date: 20120403
  Serious: Yes (Disabling)
  Sender: FDA-Public Use
  Company Number: PHEH2011US03628

PATIENT
  Sex: Female
  Weight: 61.35 kg

DRUGS (8)
  1. DIURETICS [Concomitant]
  2. BUMETANIDE [Concomitant]
     Dosage: 1 MG, UNK
  3. DEMECLOCYCLINE HCL [Concomitant]
     Dosage: 150 MG, UNK
  4. RECLAST [Suspect]
     Indication: OSTEOPOROSIS
     Dosage: 5 MG, ONCE A YEAR
     Route: 042
     Dates: start: 20110216
  5. HYDRALAZINE HCL [Concomitant]
     Dosage: 25 MG, BID
  6. ATENOLOL [Concomitant]
     Dosage: 25 MG, UNK
  7. TEMAZEPAM [Concomitant]
  8. HYDROCODONE BITARTRATE [Concomitant]
     Dosage: 10 MG, UNK

REACTIONS (2)
  - GLOMERULAR FILTRATION RATE DECREASED [None]
  - RENAL IMPAIRMENT [None]
